FAERS Safety Report 4278131-9 (Version None)
Quarter: 2004Q1

REPORT INFORMATION
  Report Type: 
  Country: None (occurrence: None)
  Receive Date: 20040123
  Receipt Date: 20040116
  Transmission Date: 20041129
  Serious: Yes (Death, Other)
  Sender: FDA-Public Use
  Company Number: WAES 0401USA01350

PATIENT
  Age: 41 Year
  Sex: Female

DRUGS (9)
  1. CANCIDAS [Suspect]
     Indication: CANDIDIASIS
     Route: 042
  2. PRIMAXIN [Suspect]
     Indication: ABDOMINAL INFECTION
     Route: 042
  3. DOBUTAMINE HYDROCHLORIDE AND DOPAMINE HYDROCHLORIDE [Concomitant]
     Route: 042
  4. ENOXAPARIN SODIUM [Concomitant]
     Route: 058
  5. HYDROCORTISONE [Concomitant]
     Indication: ADRENAL INSUFFICIENCY
     Route: 042
  6. LORAZEPAM [Concomitant]
     Route: 042
  7. MORPHINE [Concomitant]
     Route: 042
  8. NUTRITIONAL SUPPLEMENTS [Concomitant]
  9. SUCRALFATE [Concomitant]

REACTIONS (15)
  - ABDOMINAL ABSCESS [None]
  - ACUTE RESPIRATORY DISTRESS SYNDROME [None]
  - ANAEMIA [None]
  - ANAEMIA OF CHRONIC DISEASE [None]
  - BACTERIAL INFECTION [None]
  - CANDIDIASIS [None]
  - DEATH [None]
  - DRUG HYPERSENSITIVITY [None]
  - ENTEROCOCCAL INFECTION [None]
  - HAEMODIALYSIS [None]
  - HYPERGLYCAEMIA [None]
  - HYPERSENSITIVITY [None]
  - PATHOGEN RESISTANCE [None]
  - RENAL FAILURE ACUTE [None]
  - SEPSIS [None]
